FAERS Safety Report 9371805 (Version 1)
Quarter: 2013Q2

REPORT INFORMATION
  Report Type: Report from Study
  Country: US (occurrence: US)
  Receive Date: 20130627
  Receipt Date: 20130627
  Transmission Date: 20140414
  Serious: Yes (Other)
  Sender: FDA-Public Use
  Company Number: US-MYLANLABS-2012S1005167

PATIENT
  Age: 46 Year
  Sex: Female

DRUGS (5)
  1. CLOZAPINE TABLETS [Suspect]
     Route: 048
     Dates: start: 201206, end: 20121008
  2. CLOZAPINE TABLETS [Suspect]
     Route: 048
     Dates: start: 20121015
  3. DEPAKOTE [Concomitant]
  4. PAROXETINE [Concomitant]
  5. AMBIEN [Concomitant]

REACTIONS (1)
  - Granulocytopenia [Not Recovered/Not Resolved]
